FAERS Safety Report 11104837 (Version 1)
Quarter: 2015Q2

REPORT INFORMATION
  Report Type: Spontaneous
  Country: CH (occurrence: DE)
  Receive Date: 20150511
  Receipt Date: 20150511
  Transmission Date: 20150821
  Serious: Yes (Other)
  Sender: FDA-Public Use
  Company Number: CH-LPDUSPRD-20140825

PATIENT
  Age: 32 Year
  Sex: Male
  Weight: 50 kg

DRUGS (10)
  1. CIPROBAY [Concomitant]
     Active Substance: CIPROFLOXACIN
     Dosage: 1000 MG (2 IN AM, 2 IN PM)
     Route: 065
     Dates: start: 20141127, end: 20141217
  2. PANTOZOL [Concomitant]
     Active Substance: PANTOPRAZOLE SODIUM
     Dosage: ONE AT NIGHT
     Route: 048
  3. ALDACTONE [Concomitant]
     Active Substance: SPIRONOLACTONE
     Dosage: 50 MG, ONE IN MORNING
     Route: 065
  4. FERINJECT [Suspect]
     Active Substance: FERRIC CARBOXYMALTOSE
     Dosage: 2000 MG, 1 IN 1 TOTAL
     Route: 041
     Dates: start: 20141127, end: 20141127
  5. LACTULOSE. [Concomitant]
     Active Substance: LACTULOSE
     Dosage: 10 ML, ONE IN MORNING
     Route: 065
  6. PYRIDOXINE HYDROCHLORIDE. [Concomitant]
     Active Substance: PYRIDOXINE HYDROCHLORIDE
     Dosage: ONE IN THE MORNING
     Route: 065
  7. METHADONE HYDROCHLORIDE. [Concomitant]
     Active Substance: METHADONE HYDROCHLORIDE
     Dosage: 45 MG, 1 IN 1 D
     Route: 048
  8. MAGNESIUM VERLA N [Concomitant]
     Dosage: 2 IN AM, 2 IN PM
     Route: 065
  9. CARVEDILOL. [Concomitant]
     Active Substance: CARVEDILOL
     Dosage: 12.5 MG (1 IN AM, 1 IN PM)
     Route: 065
  10. FOLIC ACID. [Concomitant]
     Active Substance: FOLIC ACID
     Dosage: NOT PROVIDED
     Route: 065

REACTIONS (4)
  - Pyrexia [Recovered/Resolved with Sequelae]
  - Overdose [Unknown]
  - Serum ferritin increased [Unknown]
  - Product label confusion [Recovered/Resolved]

NARRATIVE: CASE EVENT DATE: 2014
